FAERS Safety Report 12647129 (Version 1)
Quarter: 2016Q3

REPORT INFORMATION
  Report Type: Spontaneous
  Country: BR (occurrence: BR)
  Receive Date: 20160812
  Receipt Date: 20160812
  Transmission Date: 20161109
  Serious: Yes (Other)
  Sender: FDA-Public Use
  Company Number: BR-AMGEN-BRASP2014066985

PATIENT
  Age: 54 Year
  Sex: Female
  Weight: 78 kg

DRUGS (11)
  1. ENBREL [Suspect]
     Active Substance: ETANERCEPT
     Indication: RHEUMATOID ARTHRITIS
     Dosage: 50 MG, ONCE WEEKLY
     Route: 065
     Dates: start: 201406
  2. FOLIC ACID. [Concomitant]
     Active Substance: FOLIC ACID
     Dosage: 1 TABLET (UNKNOWN DOSE), PER WEEK
  3. METHOTREXATE. [Concomitant]
     Active Substance: METHOTREXATE
     Dosage: 6 TABLETS (15 MG), PER WEEK
  4. ENALAPRIL [Concomitant]
     Active Substance: ENALAPRIL
     Dosage: ONE TABLET (5 MG), PER DAY
     Dates: start: 2012
  5. FOLIC ACID. [Concomitant]
     Active Substance: FOLIC ACID
     Dosage: 1 TABLET (UNKNOWN DOSE), PER WEEK
  6. HYDROCHLOROTHIAZIDE. [Concomitant]
     Active Substance: HYDROCHLOROTHIAZIDE
     Dosage: 2 TABLETS (100 MG), PER DAY
     Dates: start: 1997
  7. VITAMIN D [Concomitant]
     Active Substance: CHOLECALCIFEROL
     Dosage: UNK
     Dates: start: 2012
  8. METHOTREXATE. [Concomitant]
     Active Substance: METHOTREXATE
     Dosage: 6 TABLETS (15 MG), PER WEEK
  9. PREDNISONE. [Concomitant]
     Active Substance: PREDNISONE
     Dosage: ONE TABLET AND A HALF (7.5 MG), PER DAY
     Dates: start: 1997
  10. METHOTREXATE. [Concomitant]
     Active Substance: METHOTREXATE
     Dosage: 6 TABLETS (15 MG), PER WEEK
  11. FOLIC ACID. [Concomitant]
     Active Substance: FOLIC ACID
     Dosage: 1 TABLET (UNKNOWN DOSE), PER WEEK

REACTIONS (8)
  - Dysphonia [Not Recovered/Not Resolved]
  - Blood pressure fluctuation [Not Recovered/Not Resolved]
  - Nightmare [Not Recovered/Not Resolved]
  - Tooth infection [Unknown]
  - Catarrh [Not Recovered/Not Resolved]
  - Arthritis infective [Unknown]
  - Hypertension [Not Recovered/Not Resolved]
  - Sleep talking [Not Recovered/Not Resolved]

NARRATIVE: CASE EVENT DATE: 2014
